FAERS Safety Report 8931613 (Version 1)
Quarter: 2012Q4

REPORT INFORMATION
  Report Type: 
  Country: US (occurrence: US)
  Receive Date: 20121128
  Receipt Date: 20121128
  Transmission Date: 20130627
  Serious: Yes (Hospitalization, Other)
  Sender: FDA-Public Use
  Company Number: US-ACTELION-A-US2012-72680

PATIENT
  Age: 58 Year
  Sex: Female

DRUGS (3)
  1. TRACLEER [Suspect]
     Indication: PULMONARY ARTERIAL HYPERTENSION
     Dosage: UNK
     Route: 048
  2. TYVASO [Suspect]
  3. ADCIRCA [Concomitant]

REACTIONS (11)
  - Blindness [Unknown]
  - Asthenia [Unknown]
  - Dyspnoea [Unknown]
  - Vision blurred [Unknown]
  - Limb discomfort [Unknown]
  - Lip swelling [Unknown]
  - Diarrhoea [Unknown]
  - Vomiting [Unknown]
  - Nausea [Unknown]
  - Pain in extremity [None]
  - Blindness transient [None]
